FAERS Safety Report 6567665-X (Version None)
Quarter: 2010Q1

REPORT INFORMATION
  Report Type: 
  Country: None (occurrence: None)
  Receive Date: 20100203
  Receipt Date: 20100127
  Transmission Date: 20100710
  Serious: Yes (Other)
  Sender: FDA-Public Use
  Company Number: US-BIOGENIDEC-2010BI000395

PATIENT
  Age: 30 Year
  Sex: Female

DRUGS (3)
  1. TYSABRI [Suspect]
     Indication: MULTIPLE SCLEROSIS
     Route: 042
     Dates: start: 20081106, end: 20091210
  2. TYSABRI [Suspect]
     Route: 042
     Dates: start: 20070712, end: 20080904
  3. TYSABRI [Suspect]
     Route: 042
     Dates: start: 20100107

REACTIONS (2)
  - ABORTION SPONTANEOUS [None]
  - PREGNANCY [None]
